FAERS Safety Report 6960015-6 (Version None)
Quarter: 2010Q3

REPORT INFORMATION
  Report Type: 
  Country: None (occurrence: None)
  Receive Date: 20100901
  Receipt Date: 20100824
  Transmission Date: 20110219
  Serious: Yes (Other)
  Sender: FDA-Public Use
  Company Number: US-TEVA-243504USA

PATIENT
  Sex: Female

DRUGS (2)
  1. CLARAVIS [Suspect]
     Route: 048
     Dates: start: 20091204, end: 20100616
  2. SERTRALINE HYDROCHLORIDE [Concomitant]
     Dates: start: 20100121

REACTIONS (2)
  - DEPRESSION [None]
  - UNINTENDED PREGNANCY [None]
